FAERS Safety Report 8032506-0 (Version None)
Quarter: 2012Q1

REPORT INFORMATION
  Report Type: 
  Country: None (occurrence: None)
  Receive Date: 20120110
  Receipt Date: 20120103
  Transmission Date: 20120608
  Serious: No
  Sender: FDA-Public Use
  Company Number: US-JNJFOC-20120101043

PATIENT
  Sex: Female

DRUGS (9)
  1. VALIUM [Suspect]
     Indication: CEREBRAL PALSY
     Route: 048
     Dates: start: 20110101
  2. DURAGESIC-100 [Suspect]
     Indication: CEREBRAL PALSY
     Route: 062
  3. UNKNOWN MEDICATION [Concomitant]
     Indication: GASTRIC DISORDER
     Route: 065
  4. UNKNOWN MEDICATION [Concomitant]
     Indication: CONVULSION
     Route: 065
  5. PERCOCET [Suspect]
     Indication: CEREBRAL PALSY
     Dosage: 5/325
     Route: 048
  6. GABAPENTIN [Suspect]
     Indication: CEREBRAL PALSY
     Route: 048
     Dates: start: 20110101
  7. KLONOPIN [Suspect]
     Indication: CEREBRAL PALSY
     Route: 048
     Dates: start: 20110101
  8. NAPROXEN [Suspect]
     Indication: CEREBRAL PALSY
     Route: 048
     Dates: start: 20110101
  9. VALIUM [Suspect]
     Route: 048
     Dates: start: 20110101

REACTIONS (2)
  - DYSURIA [None]
  - INADEQUATE ANALGESIA [None]
